FAERS Safety Report 13825270 (Version 1)
Quarter: 2017Q3

REPORT INFORMATION
  Report Type: Spontaneous
  Country: US (occurrence: US)
  Receive Date: 20170802
  Receipt Date: 20170802
  Transmission Date: 20171127
  Serious: Yes (Other)
  Sender: FDA-Public Use
  Company Number: None

PATIENT

DRUGS (2)
  1. TRELSTAR [Suspect]
     Active Substance: TRIPTORELIN PAMOATE
     Indication: PROSTATE CANCER
     Dosage: DEPENDS ON DOSE
     Route: 030
     Dates: start: 20170718
  2. TRELSTAR [Suspect]
     Active Substance: TRIPTORELIN PAMOATE

REACTIONS (5)
  - Product quality issue [None]
  - Needle issue [None]
  - Syringe issue [None]
  - Injury associated with device [None]
  - Device breakage [None]
